FAERS Safety Report 15391780 (Version 1)
Quarter: 2018Q3

REPORT INFORMATION
  Report Type: Spontaneous
  Country: IN (occurrence: IN)
  Receive Date: 20180917
  Receipt Date: 20180917
  Transmission Date: 20181010
  Serious: Yes (Hospitalization, Other)
  Sender: FDA-Public Use
  Company Number: IN-SA-2018SA256335

PATIENT
  Sex: Male

DRUGS (1)
  1. CHLOROQUINE. [Suspect]
     Active Substance: CHLOROQUINE
     Indication: MALARIA
     Dosage: 5 MG/KG BODY WEIGHT

REACTIONS (5)
  - Intravascular haemolysis [Recovered/Resolved]
  - Anaemia [Recovered/Resolved]
  - Pallor [Recovered/Resolved]
  - Renal failure [Recovered/Resolved]
  - Haemoglobinuria [Recovered/Resolved]
